FAERS Safety Report 14807622 (Version 1)
Quarter: 2018Q2

REPORT INFORMATION
  Report Type: Spontaneous
  Country: HU (occurrence: HU)
  Receive Date: 20180425
  Receipt Date: 20180425
  Transmission Date: 20180711
  Serious: Yes (Other)
  Sender: FDA-Public Use
  Company Number: HU-TEVA-2018-HU-885351

PATIENT

DRUGS (2)
  1. TEMOZOLOMIDE. [Suspect]
     Active Substance: TEMOZOLOMIDE
     Indication: GLIOBLASTOMA MULTIFORME
     Dosage: CHEMORADIOTHERAPY
     Route: 065
  2. TEMOZOLOMIDE. [Suspect]
     Active Substance: TEMOZOLOMIDE
     Dosage: 6 CYCLES, FIRST CICLE WITH 150 UP TO 200 MG/M2

REACTIONS (8)
  - Thrombocytopenia [Unknown]
  - Vomiting [Unknown]
  - Alopecia [Unknown]
  - Neutropenia [Unknown]
  - Haematotoxicity [Unknown]
  - Dermatitis [Unknown]
  - Hypertension [Unknown]
  - Deafness [Unknown]
